FAERS Safety Report 7688065-5 (Version None)
Quarter: 2011Q3

REPORT INFORMATION
  Report Type: 
  Country: None (occurrence: None)
  Receive Date: 20110816
  Receipt Date: 20110816
  Transmission Date: 20111222
  Serious: Yes (Hospitalization)
  Sender: FDA-Public Use
  Company Number: None

PATIENT
  Age: 63 Year
  Sex: Male
  Weight: 76 kg

DRUGS (2)
  1. TERAZOSIN HCL [Suspect]
     Indication: POST-TRAUMATIC STRESS DISORDER
     Dosage: 10 MG HS PO
     Route: 048
     Dates: start: 20090111, end: 20110114
  2. TERAZOSIN HCL [Suspect]
     Indication: NIGHTMARE
     Dosage: 10 MG HS PO
     Route: 048
     Dates: start: 20090111, end: 20110114

REACTIONS (3)
  - DRUG SCREEN POSITIVE [None]
  - DRUG INTOLERANCE [None]
  - ORTHOSTATIC HYPOTENSION [None]
